FAERS Safety Report 25099674 (Version 1)
Quarter: 2025Q1

REPORT INFORMATION
  Report Type: Spontaneous
  Country: US (occurrence: None)
  Receive Date: 20250318
  Receipt Date: 20250318
  Transmission Date: 20250409
  Serious: Yes (Other)
  Sender: FDA-CTU
  Company Number: None

PATIENT
  Age: 52 Year
  Sex: Female

DRUGS (7)
  1. AMITRIPTYLINE\KETAMINE\LIDOCAINE [Suspect]
     Active Substance: AMITRIPTYLINE\KETAMINE\LIDOCAINE
     Indication: Vulvovaginal pain
     Route: 061
     Dates: start: 20240408, end: 20240508
  2. Progresterone [Concomitant]
  3. ESTRADIOL TRANSDERMAL SYSTEM [Concomitant]
     Active Substance: ESTRADIOL
  4. Clindamycain [Concomitant]
  5. FLONASE [Concomitant]
     Active Substance: FLUTICASONE PROPIONATE
  6. Pataday allergy drops [Concomitant]
  7. Vitamins/Minerals [Concomitant]

REACTIONS (2)
  - Application site vesicles [None]
  - Documented hypersensitivity to administered product [None]

NARRATIVE: CASE EVENT DATE: 20240408
